FAERS Safety Report 11353980 (Version 1)
Quarter: 2015Q3

REPORT INFORMATION
  Report Type: Spontaneous
  Country: US (occurrence: US)
  Receive Date: 20150807
  Receipt Date: 20150807
  Transmission Date: 20151125
  Serious: No
  Sender: FDA-Public Use
  Company Number: US-JNJFOC-20141115778

PATIENT
  Age: 44 Year
  Sex: Female
  Weight: 50.8 kg

DRUGS (4)
  1. ROGAINE EXTRA STRENGTH TOPICAL SOLUTION [Suspect]
     Active Substance: MINOXIDIL
     Indication: ALOPECIA
     Route: 061
     Dates: start: 20141016
  2. ARMOUR THYROID [Concomitant]
     Active Substance: THYROID, PORCINE\THYROID, UNSPECIFIED
     Indication: HYPOTHYROIDISM
     Route: 065
  3. ROGAINE EXTRA STRENGTH TOPICAL SOLUTION [Suspect]
     Active Substance: MINOXIDIL
     Indication: ALOPECIA
     Route: 061
     Dates: end: 20141117
  4. ALL OTHER THERAPEUTIC DRUG [Concomitant]
     Active Substance: UNSPECIFIED INGREDIENT
     Indication: ALOPECIA
     Route: 065

REACTIONS (5)
  - Alopecia [Not Recovered/Not Resolved]
  - Dry skin [Recovered/Resolved]
  - Incorrect dose administered [Unknown]
  - Contraindicated drug administered [Unknown]
  - Skin exfoliation [Recovered/Resolved]
